FAERS Safety Report 22280008 (Version 1)
Quarter: 2023Q2

REPORT INFORMATION
  Report Type: Spontaneous
  Country: FR (occurrence: FR)
  Receive Date: 20230503
  Receipt Date: 20230503
  Transmission Date: 20230721
  Serious: Yes (Death, Hospitalization)
  Sender: FDA-Public Use
  Company Number: None

PATIENT
  Age: 45 Year
  Sex: Male
  Weight: 92 kg

DRUGS (13)
  1. DOXORUBICIN HYDROCHLORIDE [Suspect]
     Active Substance: DOXORUBICIN HYDROCHLORIDE
     Indication: Lymphoma
     Dosage: 6 COURSES OF R-MINI CHOP CHEMOTHERAPY. 52 MG, 1 DAY/MONTH
     Route: 065
     Dates: start: 20100506, end: 20100901
  2. METHYLPREDNISOLONE [Suspect]
     Active Substance: METHYLPREDNISOLONE
     Indication: Premedication
     Route: 065
     Dates: start: 20101116, end: 201204
  3. METHYLPREDNISOLONE [Suspect]
     Active Substance: METHYLPREDNISOLONE
     Indication: Premedication
     Route: 065
     Dates: start: 20100506, end: 20100901
  4. METHYLPREDNISOLONE [Suspect]
     Active Substance: METHYLPREDNISOLONE
     Indication: Premedication
     Dosage: 813 (TOTAL)
     Route: 065
     Dates: start: 20080425, end: 20080516
  5. CYCLOPHOSPHAMIDE [Suspect]
     Active Substance: CYCLOPHOSPHAMIDE
     Indication: Lymphoma
     Dosage: 6 COURSES OF R-MINI CHOP CHEMOTHERAPY. 600 MG, 5 DAYS/MONTH
     Route: 065
     Dates: start: 20100506, end: 20100905
  6. VINCRISTINE [Suspect]
     Active Substance: VINCRISTINE
     Indication: Non-Hodgkin^s lymphoma
     Dosage: 6 COURSES OF R-MINI CHOP CHEMOTHERAPY. 2 MG, 1 DAY/MONTH
     Route: 065
     Dates: start: 20100506, end: 20100901
  7. MABTHERA [Suspect]
     Active Substance: RITUXIMAB
     Indication: Non-Hodgkin^s lymphoma
     Dosage: 800 MG ON DAY1, THEN 780 MG/CYCLE, 4 CYCLES
     Route: 065
     Dates: start: 20080425, end: 20080516
  8. MABTHERA [Suspect]
     Active Substance: RITUXIMAB
     Indication: Lymphoma
     Dosage: 6 COURSES OF R-MINI CHOP CHEMOTHERAPY. 780 MG, 1 DAY/MONTH
     Route: 065
     Dates: start: 20100506, end: 20100901
  9. MABTHERA [Suspect]
     Active Substance: RITUXIMAB
     Indication: Lymphoma
     Dosage: MAINTENANCE TREATMENT. 13 MG EVERY 2 MONTHS
     Route: 065
     Dates: start: 20101116, end: 201204
  10. METHYLPREDNISOLONE [Suspect]
     Active Substance: METHYLPREDNISOLONE
     Indication: Lymphoma
     Dosage: 6 COURSES OF R-MINI CHOP CHEMOTHERAPY. 120 MG, 1 DAY/MONTH
     Route: 065
     Dates: start: 20100506, end: 20100901
  11. METHYLPREDNISOLONE [Suspect]
     Active Substance: METHYLPREDNISOLONE
     Indication: Lymphoma
     Dosage: MAINTENANCE TREATMENT. 120 MG EVERY 2 MONTHS
     Dates: start: 20101116, end: 201204
  12. METHYLPREDNISOLONE [Suspect]
     Active Substance: METHYLPREDNISOLONE
     Indication: Non-Hodgkin^s lymphoma
     Dosage: 6 COURSES OF R-MINI CHOP CHEMOTHERAPY. 100 MG, 4 DAYS/MONTH
     Route: 065
     Dates: start: 20100507, end: 20100905
  13. CLONAZEPAM [Concomitant]
     Active Substance: CLONAZEPAM
     Indication: Neuralgia
     Route: 065

REACTIONS (1)
  - Malignant melanoma [Fatal]

NARRATIVE: CASE EVENT DATE: 20120401
